FAERS Safety Report 5627330-X (Version None)
Quarter: 2008Q1

REPORT INFORMATION
  Report Type: 
  Country: None (occurrence: None)
  Receive Date: 20080215
  Receipt Date: 20080204
  Transmission Date: 20080703
  Serious: Yes (Other)
  Sender: FDA-Public Use
  Company Number: US-JNJFOC-20080201024

PATIENT
  Sex: Female
  Weight: 47.63 kg

DRUGS (5)
  1. DURAGESIC-100 [Suspect]
     Indication: PAIN
     Route: 062
  2. DILANTIN [Concomitant]
     Indication: NERVOUSNESS
     Route: 048
  3. ESTRADIOL [Concomitant]
     Route: 048
  4. ZOLOFT [Concomitant]
     Route: 048
  5. KLONOPIN [Concomitant]
     Route: 048

REACTIONS (4)
  - HYPERHIDROSIS [None]
  - INADEQUATE ANALGESIA [None]
  - LABORATORY TEST ABNORMAL [None]
  - TREMOR [None]
